FAERS Safety Report 8916955 (Version 2)
Quarter: 2012Q4

REPORT INFORMATION
  Report Type: 
  Country: US (occurrence: US)
  Receive Date: 20121120
  Receipt Date: 20121214
  Transmission Date: 20130627
  Serious: No
  Sender: FDA-Public Use
  Company Number: US-PFIZER INC-2012287192

PATIENT
  Age: 78 Year
  Sex: Female
  Weight: 73 kg

DRUGS (3)
  1. PREMARIN [Suspect]
     Indication: URETHRAL POLYP
     Dosage: UNK, weekly
     Route: 067
     Dates: start: 201210
  2. PREMARIN [Suspect]
  3. LODINE [Suspect]
     Indication: OSTEOARTHRITIS
     Dosage: 400 mg, as needed

REACTIONS (2)
  - Drug ineffective [Unknown]
  - Discomfort [Recovered/Resolved]
